FAERS Safety Report 24619157 (Version 2)
Quarter: 2024Q4

REPORT INFORMATION
  Report Type: Spontaneous
  Country: US (occurrence: US)
  Receive Date: 20241114
  Receipt Date: 20241217
  Transmission Date: 20250115
  Serious: No
  Sender: PFIZER
  Company Number: US-PFIZER INC-2021112419

PATIENT
  Age: 61 Year
  Sex: Female

DRUGS (19)
  1. SOMAVERT [Suspect]
     Active Substance: PEGVISOMANT
     Indication: Acromegaly
     Dosage: 25 MG, 1X/DAY
     Route: 058
  2. SOMAVERT [Suspect]
     Active Substance: PEGVISOMANT
     Indication: Gigantism
     Dosage: 25 MG, 1X/DAY
     Route: 058
     Dates: start: 20210118
  3. SOMAVERT [Suspect]
     Active Substance: PEGVISOMANT
     Dosage: INJECT 25 MG UNDER THE SKIN ONCE DAILY
     Route: 058
  4. MOUNJARO [Concomitant]
     Active Substance: TIRZEPATIDE
     Dosage: UNK
  5. LIPITOR [Concomitant]
     Active Substance: ATORVASTATIN CALCIUM
  6. SANDOSTATIN LAR DEPOT [Concomitant]
     Active Substance: OCTREOTIDE ACETATE
  7. ATORVASTATIN [Concomitant]
     Active Substance: ATORVASTATIN
  8. CARVEDILOL [Concomitant]
     Active Substance: CARVEDILOL
  9. TIZANIDINE HYDROCHLORIDE [Concomitant]
     Active Substance: TIZANIDINE HYDROCHLORIDE
  10. LEVOTHYROXINE [Concomitant]
     Active Substance: LEVOTHYROXINE
  11. JARDIANCE [Concomitant]
     Active Substance: EMPAGLIFLOZIN
  12. IMIPRAMINE [Concomitant]
     Active Substance: IMIPRAMINE
  13. LORAZEPAM [Concomitant]
     Active Substance: LORAZEPAM
  14. METFORMIN [Concomitant]
     Active Substance: METFORMIN HYDROCHLORIDE
  15. HYDROCODONE BITARTRATE [Concomitant]
     Active Substance: HYDROCODONE BITARTRATE
  16. EDARBI [Concomitant]
     Active Substance: AZILSARTAN KAMEDOXOMIL
  17. ZANAFLEX [Concomitant]
     Active Substance: TIZANIDINE HYDROCHLORIDE
  18. LUNESTA [Concomitant]
     Active Substance: ESZOPICLONE
  19. COREG [Concomitant]
     Active Substance: CARVEDILOL

REACTIONS (2)
  - Product dose omission issue [Unknown]
  - Injection site swelling [Not Recovered/Not Resolved]

NARRATIVE: CASE EVENT DATE: 20210101
